FAERS Safety Report 8562950-4 (Version None)
Quarter: 2012Q3

REPORT INFORMATION
  Report Type: 
  Country: None (occurrence: None)
  Receive Date: 20120802
  Receipt Date: 20120719
  Transmission Date: 20120928
  Serious: No
  Sender: FDA-Public Use
  Company Number: US-AMGEN-USASP2012043598

PATIENT
  Age: 57 Year
  Sex: Female

DRUGS (1)
  1. ENBREL [Suspect]
     Indication: RHEUMATOID ARTHRITIS
     Dosage: 50 MG, QWK
     Dates: start: 20120127, end: 20120711

REACTIONS (6)
  - BACK PAIN [None]
  - WEIGHT DECREASED [None]
  - JOINT STIFFNESS [None]
  - CHEST PAIN [None]
  - PYREXIA [None]
  - PNEUMONIA [None]
